FAERS Safety Report 25954092 (Version 1)
Quarter: 2025Q4

REPORT INFORMATION
  Report Type: Report from Study
  Country: EU (occurrence: EU)
  Receive Date: 20251023
  Receipt Date: 20251023
  Transmission Date: 20260119
  Serious: Yes (Hospitalization)
  Sender: TEVA
  Company Number: EU-EMA-DD-20240715-7482677-084326

PATIENT
  Age: 63 Year
  Sex: Male
  Weight: 65 kg

DRUGS (43)
  1. MCP [Suspect]
     Active Substance: METOCLOPRAMIDE HYDROCHLORIDE
     Indication: Illness
     Route: 042
     Dates: start: 19981107, end: 19981107
  2. MCP [Suspect]
     Active Substance: METOCLOPRAMIDE HYDROCHLORIDE
     Indication: Illness
     Dosage: AMP 1; MCP (METOCLOPRAMIDE)
     Route: 048
     Dates: start: 19981106
  3. ASPIRIN LYSINE [Suspect]
     Active Substance: ASPIRIN LYSINE
     Indication: Angina pectoris
     Route: 042
     Dates: start: 19981107, end: 19981107
  4. NITROGLYCERIN [Suspect]
     Active Substance: NITROGLYCERIN
     Indication: Angina pectoris
     Route: 042
     Dates: start: 19981107, end: 19981108
  5. NITROGLYCERIN [Suspect]
     Active Substance: NITROGLYCERIN
     Indication: Angina pectoris
     Route: 042
     Dates: start: 19981107, end: 19981108
  6. NITROGLYCERIN [Suspect]
     Active Substance: NITROGLYCERIN
     Indication: Angina pectoris
     Dosage: UNSPECIFIED
     Route: 048
     Dates: end: 19981109
  7. NITROGLYCERIN [Suspect]
     Active Substance: NITROGLYCERIN
     Indication: Angina pectoris
     Dosage: UNK
     Route: 042
     Dates: start: 19981107, end: 19981108
  8. INSULIN NOS [Concomitant]
     Active Substance: INSULIN NOS
     Indication: Diabetes mellitus
     Route: 058
  9. Ismn basics [Concomitant]
     Indication: Coronary artery disease
     Dosage: 60 MG, QD
     Route: 048
     Dates: end: 19981106
  10. AQUAPHOR [Concomitant]
     Active Substance: PETROLATUM
     Indication: Hypertension
     Route: 048
     Dates: end: 19981106
  11. AQUAPHOR [Concomitant]
     Active Substance: PETROLATUM
     Indication: Hypertension
     Dosage: 40 MG, QD
     Route: 048
     Dates: start: 19981108
  12. ASPIRIN [Suspect]
     Active Substance: ASPIRIN
     Indication: Coronary artery disease
     Dosage: ASS MINI (ACETYLSALICYLIC ACID)
     Route: 048
  13. CARVEDILOL [Concomitant]
     Active Substance: CARVEDILOL
     Indication: Hypertension
     Dosage: 19.75 MG
     Route: 048
  14. URAPIDIL [Suspect]
     Active Substance: URAPIDIL
     Indication: Angina pectoris
     Dosage: AMP 1
     Route: 042
     Dates: start: 19981107, end: 19981107
  15. FUROSEMIDE [Suspect]
     Active Substance: FUROSEMIDE
     Indication: Oedema
     Dosage: 2 DOSAGE FORM, QD 06-NOV-1998 00:00
     Route: 048
     Dates: end: 19981106
  16. AMOXICILLIN [Suspect]
     Active Substance: AMOXICILLIN
     Indication: Bronchitis
     Dosage: UNSPECIFIED; AMOXICILLIN (AMOXICILLIN)
     Route: 048
     Dates: start: 19981107
  17. ACETAMINOPHEN [Suspect]
     Active Substance: ACETAMINOPHEN
     Indication: Pyrexia
     Route: 054
     Dates: start: 19981108, end: 19981109
  18. ALLOPURINOL [Suspect]
     Active Substance: ALLOPURINOL
     Indication: Hyperuricaemia
     Route: 048
     Dates: start: 19980925, end: 19981106
  19. NITROGLYCERIN [Suspect]
     Active Substance: NITROGLYCERIN
     Indication: Angina pectoris
     Dosage: UNSPECIFIED
     Route: 048
     Dates: start: 19981107, end: 19981107
  20. NITROGLYCERIN [Suspect]
     Active Substance: NITROGLYCERIN
     Indication: Angina pectoris
     Dosage: UNSPECIFIED
     Route: 048
     Dates: start: 19981109
  21. FLUVASTATIN SODIUM [Suspect]
     Active Substance: FLUVASTATIN SODIUM
     Indication: Hypercholesterolaemia
     Dosage: 40 MG, QD23-OCT-1998 00:00
     Route: 048
     Dates: start: 19981023, end: 19981106
  22. ACTRAPID [Suspect]
     Active Substance: INSULIN HUMAN
     Indication: Diabetes mellitus
     Dosage: 70 IU 07-NOV-1998 00:00
     Route: 042
     Dates: start: 19981107, end: 19981107
  23. PANTOZOL [Suspect]
     Active Substance: PANTOPRAZOLE SODIUM
     Indication: Gastric ulcer
     Dosage: TAB 1
     Route: 048
     Dates: start: 19981107
  24. NOVALGIN (METAMIZOLE SODIUM) [Suspect]
     Active Substance: METAMIZOLE SODIUM
     Indication: Pain
     Route: 048
     Dates: start: 19981107, end: 19981107
  25. ISOSORBIDE DINITRATE [Suspect]
     Active Substance: ISOSORBIDE DINITRATE
     Indication: Coronary artery disease
     Dosage: 20 MG, BID 08-NOV-1998 00:00
     Route: 048
     Dates: start: 19981108
  26. MOLSIDOMINE [Concomitant]
     Active Substance: MOLSIDOMINE
     Indication: Coronary artery disease
     Route: 048
     Dates: end: 19981106
  27. ACETYLCYSTEINE [Suspect]
     Active Substance: ACETYLCYSTEINE
     Indication: Mucosal inflammation
     Route: 048
     Dates: end: 19981109
  28. ACETYLCYSTEINE [Suspect]
     Active Substance: ACETYLCYSTEINE
     Indication: Mucosal inflammation
     Dosage: TAB 1 UNK, QD; ACC (ACETYLCYSTEINE)
     Route: 048
     Dates: start: 19981108
  29. MORPHINE [Suspect]
     Active Substance: MORPHINE
     Indication: Pain
     Dosage: MORPHINE (MORPHINE)
     Route: 042
     Dates: start: 19981107, end: 19981107
  30. MOLSIDOMINE [Suspect]
     Active Substance: MOLSIDOMINE
     Indication: Coronary artery disease
     Dosage: 8 MG, QD  06-NOV-1998 00:00
     Route: 048
  31. MOLSIDOMINE [Suspect]
     Active Substance: MOLSIDOMINE
     Indication: Coronary artery disease
     Dosage: UNK UNK, QD (I TAB) 08-NOV-1998 00:00
     Route: 048
     Dates: end: 19981106
  32. HEPARIN [Suspect]
     Active Substance: HEPARIN SODIUM
     Indication: Thrombosis
     Dosage: UNSPECIFIED  07-NOV-1998 00:00
     Route: 042
     Dates: end: 19981109
  33. HEPARIN [Suspect]
     Active Substance: HEPARIN SODIUM
     Indication: Thrombosis
     Dosage: UNSPECIFIED   07-NOV-1998 00:00
     Route: 058
     Dates: end: 19981107
  34. ACETYLCYSTEINE [Suspect]
     Active Substance: ACETYLCYSTEINE
     Indication: Cough
     Route: 048
     Dates: start: 19981109, end: 19981109
  35. LASIX [Suspect]
     Active Substance: FUROSEMIDE
     Indication: Coronary artery insufficiency
     Route: 042
     Dates: start: 19981107, end: 19981107
  36. DIAZEPAM [Suspect]
     Active Substance: DIAZEPAM
     Indication: Restlessness
     Dosage: DIAZEPAM (DIAZEPAM)
     Route: 048
     Dates: start: 19981107, end: 19981107
  37. FUROSEMIDE [Suspect]
     Active Substance: FUROSEMIDE
     Indication: Coronary artery insufficiency
     Dosage: UNSPECIFIED  07-NOV-1998 00:00
     Route: 048
  38. FUROSEMIDE [Suspect]
     Active Substance: FUROSEMIDE
     Indication: Coronary artery insufficiency
     Dosage: UNSPECIFIED
     Route: 048
     Dates: start: 19981107
  39. FUROSEMIDE [Suspect]
     Active Substance: FUROSEMIDE
     Indication: Coronary artery insufficiency
     Dosage: UNSPECIFIED  07-NOV-1998 00:00
     Route: 042
     Dates: end: 19981107
  40. FUROSEMIDE [Suspect]
     Active Substance: FUROSEMIDE
     Indication: Coronary artery insufficiency
     Route: 042
  41. FUROSEMIDE [Suspect]
     Active Substance: FUROSEMIDE
     Indication: Coronary artery insufficiency
     Route: 065
     Dates: end: 19981107
  42. FUROSEMIDE [Suspect]
     Active Substance: FUROSEMIDE
     Indication: Coronary artery insufficiency
     Dosage: 1 UNK, BID(TAB 2) 06-NOV-1998 00:00
     Route: 048
  43. URAPIDIL [Suspect]
     Active Substance: URAPIDIL
     Indication: Angina pectoris
     Dosage: UNK (AMP 1)
     Route: 042
     Dates: end: 19981107

REACTIONS (12)
  - Stevens-Johnson syndrome [Recovered/Resolved]
  - Pyrexia [Unknown]
  - Pruritus [Unknown]
  - Skin disorder [Unknown]
  - Leukocytosis [Unknown]
  - Blood urea increased [Unknown]
  - Ocular hyperaemia [Unknown]
  - Rash [Unknown]
  - Blood creatinine increased [Unknown]
  - Erythema multiforme [Recovered/Resolved]
  - Pruritus [Unknown]
  - Oral mucosal eruption [Unknown]

NARRATIVE: CASE EVENT DATE: 19981108
